FAERS Safety Report 25490247 (Version 1)
Quarter: 2025Q2

REPORT INFORMATION
  Report Type: Spontaneous
  Country: US (occurrence: US)
  Receive Date: 20250628
  Receipt Date: 20250628
  Transmission Date: 20250716
  Serious: No
  Sender: SANOFI AVENTIS
  Company Number: US-SA-2025SA178190

PATIENT
  Age: 51 Year
  Sex: Male

DRUGS (1)
  1. FABRAZYME [Suspect]
     Active Substance: AGALSIDASE BETA

REACTIONS (3)
  - Globotriaosylsphingosine increased [Unknown]
  - Drug specific antibody present [Unknown]
  - Neutralising antibodies positive [Unknown]

NARRATIVE: CASE EVENT DATE: 20250605
